FAERS Safety Report 13447257 (Version 1)
Quarter: 2017Q2

REPORT INFORMATION
  Report Type: Spontaneous
  Country: US (occurrence: US)
  Receive Date: 20170417
  Receipt Date: 20170417
  Transmission Date: 20170830
  Serious: Yes (Hospitalization, Other)
  Sender: FDA-Public Use
  Company Number: US-LUNDBECK-DKLU2024712

PATIENT
  Sex: Male

DRUGS (2)
  1. SABRIL [Suspect]
     Active Substance: VIGABATRIN
     Indication: FOCAL DYSCOGNITIVE SEIZURES
     Route: 065
     Dates: start: 20130212
  2. SABRIL [Suspect]
     Active Substance: VIGABATRIN
     Dosage: DOSE DECREASED
     Route: 065

REACTIONS (3)
  - Wound infection [Unknown]
  - Sedation [Recovering/Resolving]
  - Mental status changes [Recovering/Resolving]
